FAERS Safety Report 8477220-2 (Version None)
Quarter: 2012Q2

REPORT INFORMATION
  Report Type: 
  Country: None (occurrence: None)
  Receive Date: 20120629
  Receipt Date: 20120625
  Transmission Date: 20120825
  Serious: No
  Sender: FDA-Public Use
  Company Number: US-B.I. PHARMACEUTICALS,INC./RIDGEFIELD-2012-BP-14430BP

PATIENT
  Sex: Male

DRUGS (1)
  1. PRADAXA [Suspect]
     Dates: end: 20120101

REACTIONS (2)
  - NEPHROLITHIASIS [None]
  - HAEMATURIA [None]
